FAERS Safety Report 14734058 (Version 1)
Quarter: 2018Q2

REPORT INFORMATION
  Report Type: Spontaneous
  Country: CA (occurrence: CA)
  Receive Date: 20180409
  Receipt Date: 20180409
  Transmission Date: 20180711
  Serious: Yes (Life-Threatening, Hospitalization)
  Sender: FDA-Public Use
  Company Number: CA-ALLERGAN-1819565US

PATIENT
  Age: 37 Year
  Sex: Female
  Weight: 61 kg

DRUGS (1)
  1. CITALOPRAM HYDROBROMIDE - BP [Suspect]
     Active Substance: CITALOPRAM HYDROBROMIDE
     Indication: DEPRESSION
     Dosage: 0.5 DF, QD
     Route: 048

REACTIONS (3)
  - Throat tightness [Recovered/Resolved]
  - Pharyngeal paraesthesia [Recovered/Resolved]
  - Swollen tongue [Recovered/Resolved]
